FAERS Safety Report 13010424 (Version 3)
Quarter: 2018Q4

REPORT INFORMATION
  Report Type: Spontaneous
  Country: US (occurrence: US)
  Receive Date: 20161208
  Receipt Date: 20181217
  Transmission Date: 20190204
  Serious: No
  Sender: FDA-Public Use
  Company Number: US-PFIZER INC-2016550342

PATIENT
  Age: 48 Year
  Sex: Male
  Weight: 75 kg

DRUGS (22)
  1. GENOTROPIN MQ [Suspect]
     Active Substance: SOMATROPIN
     Indication: GROWTH HORMONE DEFICIENCY
     Dosage: 0.8 MG, DAILY (0.5MG/0.25ML)
     Route: 058
     Dates: start: 20160706
  2. GENOTROPIN MQ [Suspect]
     Active Substance: SOMATROPIN
     Dosage: 0.4 MG,5 DAYS PER WEEK
  3. CORTEF [Concomitant]
     Active Substance: HYDROCORTISONE
     Dosage: 10 MG, DAILY (TAKE TWO AND ONE HALF TABLET) EVERY MORNING
     Route: 048
  4. GENOTROPIN MQ [Suspect]
     Active Substance: SOMATROPIN
     Dosage: 0.4 MG,DAILY
  5. BUTTERBUR ROOT EXTRACT/FICUS CARICA/SENNA ALEXANDRINA FRUIT [Concomitant]
     Dosage: 75 MG, 2X/DAY
     Route: 048
  6. CYTOMEL [Concomitant]
     Active Substance: LIOTHYRONINE SODIUM
     Dosage: 10 UG, DAILY (2 TABLETS DAILY)
     Route: 048
  7. GENOTROPIN MQ [Suspect]
     Active Substance: SOMATROPIN
     Dosage: 0.6 MG,  6 DAYS PER WEEK
  8. CORTEF [Concomitant]
     Active Substance: HYDROCORTISONE
     Dosage: 25 MG, DAILY
     Route: 048
  9. ANDROGEL [Concomitant]
     Active Substance: TESTOSTERONE
     Dosage: 7.5 G, DAILY (TO CLEAN AREA)
     Route: 061
  10. SYNTHROID [Concomitant]
     Active Substance: LEVOTHYROXINE SODIUM
     Dosage: 150 UG, DAILY
     Route: 048
  11. DEXAMETHASONE. [Concomitant]
     Active Substance: DEXAMETHASONE
     Indication: ADRENAL INSUFFICIENCY
     Dosage: UNK
  12. HYDROCORTISONE. [Concomitant]
     Active Substance: HYDROCORTISONE
     Indication: ADRENAL INSUFFICIENCY
     Dosage: 25 MG, 1X/DAY(IN THE EARLY AM, NO PM DOSE)
  13. GENOTROPIN MQ [Suspect]
     Active Substance: SOMATROPIN
     Indication: HYPOPITUITARISM
     Dosage: 0.4 MG, 1X/DAY
     Route: 058
     Dates: start: 2009
  14. COENZYME [Concomitant]
     Active Substance: UBIDECARENONE
     Dosage: 200 MG, DAILY
     Route: 048
  15. ANDROGEL [Concomitant]
     Active Substance: TESTOSTERONE
     Dosage: 5 G, DAILY ((25 MG/2.5 G) TD) TO CLEAN DRY AREA
     Route: 061
  16. RIBOFLAVIN [Concomitant]
     Active Substance: RIBOFLAVIN
     Dosage: 400 MG, DAILY
     Route: 048
  17. LEVOTHYROXINE. [Concomitant]
     Active Substance: LEVOTHYROXINE
     Indication: THYROID DISORDER
     Dosage: 112 UG, DAILY
     Route: 048
  18. GENOTROPIN MQ [Suspect]
     Active Substance: SOMATROPIN
     Dosage: 0.6 MG, DAILY
  19. SYNTHROID [Concomitant]
     Active Substance: LEVOTHYROXINE SODIUM
     Dosage: 100 UG, DAILY
     Route: 048
  20. MAGNESIUM [Concomitant]
     Active Substance: MAGNESIUM
     Dosage: 300 MG, DAILY
     Route: 048
  21. CORTEF [Concomitant]
     Active Substance: HYDROCORTISONE
     Indication: ADRENAL INSUFFICIENCY
     Dosage: 20 MG, DAILY
     Route: 048
  22. DEPO-TESTOSTERONE [Concomitant]
     Active Substance: TESTOSTERONE CYPIONATE
     Dosage: 1.25 ML, 2X/WEEK
     Route: 030

REACTIONS (8)
  - Headache [Recovered/Resolved]
  - Arthralgia [Unknown]
  - Product dose omission [Unknown]
  - Insomnia [Unknown]
  - Swelling face [Unknown]
  - Weight increased [Unknown]
  - Drug ineffective [Unknown]
  - Nausea [Unknown]
